FAERS Safety Report 5465358-3 (Version None)
Quarter: 2007Q3

REPORT INFORMATION
  Report Type: 
  Country: None (occurrence: None)
  Receive Date: 20070920
  Receipt Date: 20070920
  Transmission Date: 20080115
  Serious: Yes (Hospitalization)
  Sender: FDA-Public Use
  Company Number: None

PATIENT
  Age: 40 Year
  Sex: Female
  Weight: 78 kg

DRUGS (1)
  1. DANTROLENE SODIUM [Suspect]
     Indication: HYPERTHERMIA MALIGNANT
     Dosage: 200MG 1 DOSE IV 53 MG EVERY 4 HOURS IV
     Route: 042
     Dates: start: 20070906, end: 20070907

REACTIONS (9)
  - BURNING SENSATION [None]
  - CONTUSION [None]
  - DRUG DOSE OMISSION [None]
  - DRUG INTOLERANCE [None]
  - ERYTHEMA [None]
  - INFUSION RELATED REACTION [None]
  - OEDEMA PERIPHERAL [None]
  - PAIN IN EXTREMITY [None]
  - TENDERNESS [None]
